FAERS Safety Report 11967450 (Version 10)
Quarter: 2017Q1

REPORT INFORMATION
  Report Type: Report from Study
  Country: US (occurrence: US)
  Receive Date: 20160127
  Receipt Date: 20170223
  Transmission Date: 20170428
  Serious: Yes (Hospitalization, Other)
  Sender: FDA-Public Use
  Company Number: US-ACTELION-A-US2016-130396

PATIENT
  Age: 60 Year
  Sex: Female
  Weight: 96.15 kg

DRUGS (4)
  1. DILTIAZEM. [Concomitant]
     Active Substance: DILTIAZEM
  2. OXYGEN. [Concomitant]
     Active Substance: OXYGEN
  3. REVATIO [Concomitant]
     Active Substance: SILDENAFIL CITRATE
  4. OPSUMIT [Suspect]
     Active Substance: MACITENTAN
     Indication: PULMONARY HYPERTENSION
     Dosage: 10 MG, QD
     Route: 048
     Dates: start: 20160118

REACTIONS (21)
  - Cerebrovascular accident [Unknown]
  - Confusional state [Unknown]
  - Visual impairment [Unknown]
  - Asthenia [Unknown]
  - Pulmonary congestion [Unknown]
  - Dyspnoea exertional [Unknown]
  - Chest discomfort [Unknown]
  - Dyspnoea [Unknown]
  - Vaginal haemorrhage [Unknown]
  - Device related infection [Unknown]
  - Swelling [Unknown]
  - Pain [Unknown]
  - Cystitis [Unknown]
  - Pneumonia [Unknown]
  - Therapy non-responder [Unknown]
  - Nasal congestion [Unknown]
  - Cellulitis [Unknown]
  - Vertigo [Unknown]
  - Oedema peripheral [Unknown]
  - Dizziness [Unknown]
  - Fatigue [Unknown]

NARRATIVE: CASE EVENT DATE: 201607
